FAERS Safety Report 13237703 (Version 1)
Quarter: 2017Q1

REPORT INFORMATION
  Report Type: Spontaneous
  Country: US (occurrence: US)
  Receive Date: 20170215
  Receipt Date: 20170215
  Transmission Date: 20170428
  Serious: No
  Sender: FDA-Public Use
  Company Number: US-ACCORD-047853

PATIENT
  Age: 41 Year
  Sex: Female

DRUGS (1)
  1. CAPECITABINE. [Suspect]
     Active Substance: CAPECITABINE
     Indication: NEOPLASM MALIGNANT
     Dosage: 1 TABLET/DAY FOR 14 DAYS AND REPEAT CYCLE AS PRESCRIBED
     Route: 048
     Dates: start: 20160808

REACTIONS (3)
  - Insomnia [Unknown]
  - Fatigue [Unknown]
  - Pigmentation disorder [Unknown]
